FAERS Safety Report 22862151 (Version 8)
Quarter: 2024Q3

REPORT INFORMATION
  Report Type: Spontaneous
  Country: US (occurrence: US)
  Receive Date: 20230824
  Receipt Date: 20240709
  Transmission Date: 20241017
  Serious: No
  Sender: SANOFI AVENTIS
  Company Number: US-SA-SAC20230821000296

PATIENT
  Age: 68 Year
  Sex: Female

DRUGS (3)
  1. DUPIXENT [Suspect]
     Active Substance: DUPILUMAB
     Indication: Nasal polyps
     Dosage: 300 MG, QOW
     Route: 058
     Dates: start: 20230729, end: 202309
  2. DUPIXENT [Suspect]
     Active Substance: DUPILUMAB
     Indication: Seasonal allergy
     Dosage: 300 MG, QOW
     Route: 058
     Dates: start: 20240124
  3. DUPIXENT [Suspect]
     Active Substance: DUPILUMAB
     Indication: Anosmia

REACTIONS (20)
  - Nasal polyps [Unknown]
  - Nasal obstruction [Unknown]
  - Anosmia [Not Recovered/Not Resolved]
  - Nasal congestion [Not Recovered/Not Resolved]
  - Rhinorrhoea [Not Recovered/Not Resolved]
  - Cough [Unknown]
  - Wheezing [Unknown]
  - Gastrointestinal sounds abnormal [Unknown]
  - Pelvic pain [Unknown]
  - Condition aggravated [Unknown]
  - Back pain [Unknown]
  - Oral herpes [Unknown]
  - Eosinophil count increased [Unknown]
  - Eye pruritus [Unknown]
  - Sinus operation [Unknown]
  - Arthralgia [Unknown]
  - Injection site erythema [Recovered/Resolved]
  - Drug ineffective [Unknown]
  - Product use in unapproved indication [Unknown]
  - Pain [Not Recovered/Not Resolved]

NARRATIVE: CASE EVENT DATE: 20230101
